FAERS Safety Report 9815522 (Version 3)
Quarter: 2014Q1

REPORT INFORMATION
  Report Type: Spontaneous
  Country: JP (occurrence: JP)
  Receive Date: 20140114
  Receipt Date: 20140129
  Transmission Date: 20141002
  Serious: Yes (Hospitalization)
  Sender: FDA-Public Use
  Company Number: JP-009507513-1401JPN004665

PATIENT
  Age: 87 Year
  Sex: Male
  Weight: 57 kg

DRUGS (1)
  1. JANUVIA TABLETS 25MG [Suspect]
     Indication: DIABETES MELLITUS
     Dosage: 50 MG, BID
     Route: 048
     Dates: end: 20140101

REACTIONS (1)
  - Interstitial lung disease [Recovering/Resolving]
